FAERS Safety Report 4716841-7 (Version None)
Quarter: 2005Q3

REPORT INFORMATION
  Report Type: 
  Country: None (occurrence: None)
  Receive Date: 20050719
  Receipt Date: 20050404
  Transmission Date: 20060218
  Serious: Yes (Hospitalization)
  Sender: FDA-Public Use
  Company Number: GB-JNJFOC-20050300433

PATIENT
  Sex: Male

DRUGS (1)
  1. TOPIRAMATE [Suspect]
     Indication: EPILEPSY
     Route: 048
     Dates: start: 20010614, end: 20040507

REACTIONS (5)
  - AGITATION [None]
  - BODY DYSMORPHIC DISORDER [None]
  - HEADACHE [None]
  - PERIPHERAL COLDNESS [None]
  - TREMOR [None]
